FAERS Safety Report 25273444 (Version 4)
Quarter: 2025Q2

REPORT INFORMATION
  Report Type: Spontaneous
  Country: JP (occurrence: JP)
  Receive Date: 20250506
  Receipt Date: 20250606
  Transmission Date: 20250716
  Serious: No
  Sender: PFIZER
  Company Number: JP-PFIZER INC-202500088887

PATIENT

DRUGS (1)
  1. GENOTROPIN [Suspect]
     Active Substance: SOMATROPIN

REACTIONS (1)
  - Product deposit [Unknown]

NARRATIVE: CASE EVENT DATE: 20250424
